FAERS Safety Report 25254927 (Version 1)
Quarter: 2025Q2

REPORT INFORMATION
  Report Type: Report from Study
  Country: IT (occurrence: IT)
  Receive Date: 20250430
  Receipt Date: 20250430
  Transmission Date: 20250717
  Serious: Yes (Life-Threatening, Other)
  Sender: AUROBINDO
  Company Number: IT-MINISAL02-109692

PATIENT
  Sex: Male

DRUGS (4)
  1. ZEVALIN [Suspect]
     Active Substance: IBRITUMOMAB TIUXETAN
     Indication: Non-Hodgkin^s lymphoma
     Route: 065
  2. ZEVALIN [Suspect]
     Active Substance: IBRITUMOMAB TIUXETAN
     Indication: Follicular lymphoma
  3. RITUXIMAB [Concomitant]
     Active Substance: RITUXIMAB
     Indication: Non-Hodgkin^s lymphoma
     Route: 065
  4. RITUXIMAB [Concomitant]
     Active Substance: RITUXIMAB
     Indication: Follicular lymphoma

REACTIONS (2)
  - Neutropenia [Unknown]
  - Thrombocytopenia [Unknown]
